FAERS Safety Report 11297638 (Version 1)
Quarter: 2015Q3

REPORT INFORMATION
  Report Type: Spontaneous
  Country: US (occurrence: US)
  Receive Date: 20150722
  Receipt Date: 20150722
  Transmission Date: 20151125
  Serious: No
  Sender: FDA-Public Use
  Company Number: US-ELI_LILLY_AND_COMPANY-US200904004028

PATIENT
  Sex: Female

DRUGS (3)
  1. HUMATROPE [Suspect]
     Active Substance: SOMATROPIN
     Dosage: 1.6 MG, DAILY (1/D)
     Dates: start: 2007, end: 200901
  2. DESMOPRESSIN [Concomitant]
     Active Substance: DESMOPRESSIN
  3. HUMATROPE [Suspect]
     Active Substance: SOMATROPIN
     Dosage: 2.4 MG, DAILY (1/D)
     Dates: start: 200901

REACTIONS (1)
  - Incorrect dose administered [Not Recovered/Not Resolved]

NARRATIVE: CASE EVENT DATE: 200901
